FAERS Safety Report 16881324 (Version 2)
Quarter: 2019Q4

REPORT INFORMATION
  Report Type: Spontaneous
  Country: NL (occurrence: NL)
  Receive Date: 20191003
  Receipt Date: 20191028
  Transmission Date: 20200122
  Serious: Yes (Other)
  Sender: FDA-Public Use
  Company Number: NL-PFIZER INC-2019418308

PATIENT
  Age: 7 Week
  Sex: Female
  Weight: 4 kg

DRUGS (8)
  1. FRAXIPARIN [Suspect]
     Active Substance: NADROPARIN CALCIUM
     Dosage: 650 IU, 2X/DAY
     Dates: start: 20190814
  2. LORAZEPAM. [Concomitant]
     Active Substance: LORAZEPAM
     Dosage: 0.3 MG, EVERY 4 HOURS
     Route: 048
     Dates: start: 20190804
  3. SPIRONOLACTON [Concomitant]
     Active Substance: SPIRONOLACTONE
     Dosage: 3 MG, 3X/DAY (EVERY 8 HOURS)
     Route: 048
     Dates: start: 20190722
  4. MEROPENEM. [Suspect]
     Active Substance: MEROPENEM
     Indication: ENTEROBACTER SEPSIS
     Dosage: 76 MG, 3X/DAY (60 MG/KG/DAY: 3X/DAY 76 MG)
     Route: 050
     Dates: start: 20190808, end: 20190819
  5. PARACETAMOL [Concomitant]
     Active Substance: ACETAMINOPHEN
     Dosage: 60 MG, AS NEEDED (IF NECESSARY 4X/DAY 60 MG PO)
     Route: 048
     Dates: start: 20190724
  6. FUROSEMIDE. [Concomitant]
     Active Substance: FUROSEMIDE
     Dosage: 1 ML, 4X/DAY (4X/DAY 1.8 MG PO)
     Route: 048
     Dates: start: 20190810
  7. VIT D [Concomitant]
     Active Substance: VITAMIN D NOS
     Dosage: 400 IU, DAILY
     Dates: start: 20190812
  8. VITAMIN K [Concomitant]
     Active Substance: PHYTONADIONE
     Dosage: 150 UG, DAILY
     Route: 048
     Dates: start: 20190812

REACTIONS (6)
  - Laboratory test interference [Recovered/Resolved]
  - Lipids increased [Recovered/Resolved]
  - Blood cholesterol increased [Recovered/Resolved]
  - Product use issue [Unknown]
  - Blood triglycerides increased [Recovered/Resolved]
  - Off label use [Unknown]

NARRATIVE: CASE EVENT DATE: 20190808
